FAERS Safety Report 5743661-7 (Version None)
Quarter: 2008Q2

REPORT INFORMATION
  Report Type: 
  Country: None (occurrence: None)
  Receive Date: 20080516
  Receipt Date: 20080502
  Transmission Date: 20081010
  Serious: Yes (Hospitalization)
  Sender: FDA-Public Use
  Company Number: 2008BI003761

PATIENT
  Sex: Female

DRUGS (6)
  1. TYSABRI [Suspect]
     Indication: MULTIPLE SCLEROSIS
     Dosage: 300 MG; QM; IV
     Route: 042
     Dates: start: 20061127, end: 20080219
  2. AVONEX [Concomitant]
  3. DETROL [Concomitant]
  4. CARBAMAZEPINE [Concomitant]
  5. BACLOFEN [Concomitant]
  6. NEURONTIN [Concomitant]

REACTIONS (9)
  - CEREBRAL INFARCTION [None]
  - CONFUSIONAL STATE [None]
  - DEMYELINATION [None]
  - DRUG INEFFECTIVE [None]
  - ELECTROENCEPHALOGRAM ABNORMAL [None]
  - MULTIPLE SCLEROSIS RELAPSE [None]
  - PARTIAL SEIZURES [None]
  - SUBDURAL HAEMATOMA [None]
  - URINARY TRACT INFECTION [None]
